FAERS Safety Report 5956965-X (Version None)
Quarter: 2008Q4

REPORT INFORMATION
  Report Type: 
  Country: None (occurrence: None)
  Receive Date: 20081031
  Receipt Date: 20080815
  Transmission Date: 20090506
  Serious: No
  Sender: FDA-Public Use
  Company Number: 2008PV036472

PATIENT
  Age: 55 Year
  Sex: Female
  Weight: 110.6777 kg

DRUGS (4)
  1. SYMLIN [Suspect]
     Indication: TYPE 2 DIABETES MELLITUS
     Dosage: 120 MCG;TID; SC;  60 MCG;TID; SC
     Route: 058
     Dates: start: 20080401, end: 20080401
  2. SYMLIN [Suspect]
     Indication: TYPE 2 DIABETES MELLITUS
     Dosage: 120 MCG;TID; SC;  60 MCG;TID; SC
     Route: 058
     Dates: start: 20080401
  3. NOVOLOG [Suspect]
     Indication: TYPE 2 DIABETES MELLITUS
     Dosage: SC
     Route: 058
  4. LEVEMIR [Concomitant]

REACTIONS (1)
  - BLOOD GLUCOSE DECREASED [None]
